FAERS Safety Report 7997120-1 (Version None)
Quarter: 2011Q4

REPORT INFORMATION
  Report Type: 
  Country: None (occurrence: None)
  Receive Date: 20111209
  Receipt Date: 20111028
  Transmission Date: 20120403
  Serious: Yes (Life-Threatening)
  Sender: FDA-Public Use
  Company Number: 2011-01229

PATIENT
  Age: 74 Year
  Sex: Male

DRUGS (2)
  1. SIMVASTATIN [Suspect]
     Indication: HYPERCHOLESTEROLAEMIA
     Dosage: 80 MG (80 MG, UNK), ORAL
     Route: 048
     Dates: start: 20050101, end: 20110904
  2. UNSPECIFIED DRUGS [Concomitant]

REACTIONS (7)
  - RHABDOMYOLYSIS [None]
  - VOLVULUS [None]
  - GASTROINTESTINAL CARCINOMA [None]
  - LIVER FUNCTION TEST ABNORMAL [None]
  - HAEMODIALYSIS [None]
  - RENAL FAILURE ACUTE [None]
  - SEPSIS [None]
